FAERS Safety Report 14126212 (Version 1)
Quarter: 2017Q4

REPORT INFORMATION
  Report Type: Spontaneous
  Country: FR (occurrence: FR)
  Receive Date: 20171025
  Receipt Date: 20171025
  Transmission Date: 20180321
  Serious: Yes (Congenital Anomaly)
  Sender: FDA-Public Use
  Company Number: FR-ABBVIE-17P-056-2143111-00

PATIENT
  Sex: Female

DRUGS (1)
  1. DEPAKOTE [Suspect]
     Active Substance: DIVALPROEX SODIUM
     Indication: MATERNAL EXPOSURE TIMING UNSPECIFIED
     Route: 064

REACTIONS (7)
  - Syringomyelia [Not Recovered/Not Resolved]
  - Abnormal behaviour [Not Recovered/Not Resolved]
  - Arnold-Chiari malformation [Not Recovered/Not Resolved]
  - Foetal exposure during pregnancy [Unknown]
  - Eating disorder [Not Recovered/Not Resolved]
  - Dysphagia [Not Recovered/Not Resolved]
  - Psychomotor retardation [Not Recovered/Not Resolved]

NARRATIVE: CASE EVENT DATE: 2013
